FAERS Safety Report 23931327 (Version 1)
Quarter: 2024Q2

REPORT INFORMATION
  Report Type: Spontaneous
  Country: US (occurrence: US)
  Receive Date: 20240603
  Receipt Date: 20240603
  Transmission Date: 20240715
  Serious: No
  Sender: FDA-Public Use
  Company Number: US-ABBVIE-5779639

PATIENT
  Age: 57 Year
  Sex: Female
  Weight: 97.522 kg

DRUGS (1)
  1. SKYRIZI [Suspect]
     Active Substance: RISANKIZUMAB-RZAA
     Indication: Psoriasis
     Dosage: STRENGTH: 150 MILLIGRAM
     Route: 058
     Dates: start: 20240325

REACTIONS (1)
  - Rotator cuff syndrome [Recovering/Resolving]

NARRATIVE: CASE EVENT DATE: 20240301
